FAERS Safety Report 9196252 (Version 2)
Quarter: 2013Q2

REPORT INFORMATION
  Report Type: Spontaneous
  Country: US (occurrence: US)
  Receive Date: 20130328
  Receipt Date: 20130418
  Transmission Date: 20140414
  Serious: No
  Sender: FDA-Public Use
  Company Number: US-JNJFOC-20130314875

PATIENT
  Sex: Female
  Weight: 58 kg

DRUGS (1)
  1. TOPAMAX [Suspect]
     Indication: TRIGEMINAL NEURALGIA
     Route: 048

REACTIONS (2)
  - Palpitations [Recovered/Resolved]
  - Heart rate increased [Recovered/Resolved]
